FAERS Safety Report 16296168 (Version 1)
Quarter: 2019Q2

REPORT INFORMATION
  Report Type: Report from Study
  Country: None (occurrence: CZ)
  Receive Date: 20190509
  Receipt Date: 20190509
  Transmission Date: 20190711
  Serious: Yes (Death, Other)
  Sender: FDA-Public Use
  Company Number: CZ-ABBVIE-19K-217-2776389-00

PATIENT
  Age: 80 Year
  Sex: Female

DRUGS (1)
  1. HUMIRA [Suspect]
     Active Substance: ADALIMUMAB
     Indication: RHEUMATOID ARTHRITIS
     Route: 058
     Dates: start: 20120626, end: 20190401

REACTIONS (6)
  - Facial paresis [Unknown]
  - Death [Fatal]
  - Hemiparesis [Unknown]
  - Cerebrovascular accident [Unknown]
  - Speech disorder [Unknown]
  - Coronary artery embolism [Unknown]

NARRATIVE: CASE EVENT DATE: 2019
